FAERS Safety Report 9706510 (Version 2)
Quarter: 2020Q3

REPORT INFORMATION
  Report Type: Report from Study
  Country: GB (occurrence: GB)
  Receive Date: 20131125
  Receipt Date: 20131125
  Transmission Date: 20201104
  Serious: Yes (Hospitalization)
  Sender: FDA-Public Use
  Company Number: GB-JNJFOC-20130519269

PATIENT
  Age: 76 Year
  Sex: Male
  Weight: 79 kg

DRUGS (6)
  1. IBRUTINIB [Suspect]
     Active Substance: IBRUTINIB
     Indication: CHRONIC LYMPHOCYTIC LEUKAEMIA
     Route: 048
     Dates: start: 20121123
  2. ALLOPURINOL. [Concomitant]
     Active Substance: ALLOPURINOL
     Indication: GOUT
     Route: 048
     Dates: start: 20130407
  3. HYDROMOL [Concomitant]
     Indication: PRURITUS
     Route: 061
     Dates: start: 20130124
  4. IBRUTINIB [Suspect]
     Active Substance: IBRUTINIB
     Indication: LYMPHOCYTIC LYMPHOMA
     Route: 048
     Dates: start: 20121123
  5. OXYBUTYNIN. [Concomitant]
     Active Substance: OXYBUTYNIN CHLORIDE
     Indication: POLLAKIURIA
     Route: 048
     Dates: start: 20130308
  6. CROTAMITON [Concomitant]
     Active Substance: CROTAMITON
     Indication: PRURITUS
     Route: 061
     Dates: start: 20130124

REACTIONS (8)
  - Non-cardiac chest pain [Recovered/Resolved]
  - Protein total decreased [None]
  - Arthritis [Not Recovered/Not Resolved]
  - Platelet count decreased [None]
  - Blood albumin decreased [None]
  - Pleural fibrosis [None]
  - Haemoglobin decreased [None]
  - Red blood cell count decreased [None]

NARRATIVE: CASE EVENT DATE: 20130523
